FAERS Safety Report 24356043 (Version 2)
Quarter: 2024Q4

REPORT INFORMATION
  Report Type: Report from Study
  Country: US (occurrence: US)
  Receive Date: 20240924
  Receipt Date: 20241001
  Transmission Date: 20250115
  Serious: Yes (Hospitalization, Other)
  Sender: ABBVIE
  Company Number: US-ABBVIE-5931400

PATIENT
  Sex: Female
  Weight: 83 kg

DRUGS (5)
  1. HUMIRA [Suspect]
     Active Substance: ADALIMUMAB
     Indication: Hidradenitis
     Dosage: CITRATE FREE, FORM STRENGTH: 40 MILLIGRAM,?LAST ADMIN DATE WAS AUG 2024
     Route: 058
     Dates: start: 2021
  2. HUMIRA [Suspect]
     Active Substance: ADALIMUMAB
     Dosage: CITRATE FREE, FORM STRENGTH: 40 MILLIGRAM?FIRST ADMIN DATE: 2024
     Route: 058
  3. GLUCOPHAGE [Concomitant]
     Active Substance: METFORMIN HYDROCHLORIDE
     Indication: Type 2 diabetes mellitus
  4. IRON [Concomitant]
     Active Substance: IRON
     Indication: Product used for unknown indication
  5. METOPROLOL [Concomitant]
     Active Substance: METOPROLOL
     Indication: Hypertension

REACTIONS (11)
  - Wound infection [Recovered/Resolved]
  - Pain [Unknown]
  - Wound [Unknown]
  - Blood albumin decreased [Unknown]
  - Protein total decreased [Unknown]
  - Limb injury [Unknown]
  - Spinal column injury [Unknown]
  - Limb injury [Unknown]
  - Wound [Unknown]
  - Limb injury [Unknown]
  - Buttock injury [Unknown]

NARRATIVE: CASE EVENT DATE: 20210101
